FAERS Safety Report 5416381-6 (Version None)
Quarter: 2007Q3

REPORT INFORMATION
  Report Type: 
  Country: None (occurrence: None)
  Receive Date: 20070718
  Receipt Date: 20070403
  Transmission Date: 20080115
  Serious: Yes (Death)
  Sender: FDA-Public Use
  Company Number: 2006022238

PATIENT
  Age: 50 Year
  Sex: Male
  Weight: 136.1 kg

DRUGS (1)
  1. CELEBREX [Suspect]
     Indication: ARTHRITIS
     Dates: start: 19990501, end: 19990801

REACTIONS (1)
  - MYOCARDIAL INFARCTION [None]
